FAERS Safety Report 13498799 (Version 1)
Quarter: 2017Q2

REPORT INFORMATION
  Report Type: Spontaneous
  Country: GB (occurrence: GB)
  Receive Date: 20170501
  Receipt Date: 20170501
  Transmission Date: 20170830
  Serious: Yes (Hospitalization)
  Sender: FDA-Public Use
  Company Number: GB-ACCORD-050773

PATIENT
  Age: 86 Year
  Sex: Male

DRUGS (9)
  1. BUMETANIDE. [Suspect]
     Active Substance: BUMETANIDE
     Indication: PRODUCT USED FOR UNKNOWN INDICATION
     Dosage: 1MG OD
     Route: 048
     Dates: end: 20170407
  2. ALLOPURINOL. [Concomitant]
     Active Substance: ALLOPURINOL
  3. BISOPROLOL [Suspect]
     Active Substance: BISOPROLOL
     Indication: CARDIAC FAILURE CHRONIC
     Route: 048
     Dates: end: 20170407
  4. EPADERM [Concomitant]
     Active Substance: MINERAL OIL\PETROLATUM\WAX, EMULSIFYING
     Dosage: AS DIRECTED.
  5. CLOPIDOGREL [Concomitant]
     Active Substance: CLOPIDOGREL BISULFATE
  6. ISOSORBIDE. [Concomitant]
     Active Substance: ISOSORBIDE
  7. RAMIPRIL. [Suspect]
     Active Substance: RAMIPRIL
     Indication: CARDIAC FAILURE CHRONIC
     Route: 048
     Dates: end: 20170407
  8. BETNOVATE [Concomitant]
     Active Substance: BETAMETHASONE
  9. PANTOPRAZOLE [Concomitant]
     Active Substance: PANTOPRAZOLE

REACTIONS (4)
  - Balance disorder [Recovering/Resolving]
  - Oedema [Unknown]
  - Acute kidney injury [Recovering/Resolving]
  - Fall [Unknown]
